FAERS Safety Report 21625517 (Version 2)
Quarter: 2023Q1

REPORT INFORMATION
  Report Type: Report from Study
  Country: US (occurrence: US)
  Receive Date: 20221122
  Receipt Date: 20230218
  Transmission Date: 20230417
  Serious: No
  Sender: FDA-Public Use
  Company Number: US-002147023-NVSC2022US261710

PATIENT
  Age: 56 Year
  Sex: Female

DRUGS (3)
  1. KESIMPTA [Suspect]
     Active Substance: OFATUMUMAB
     Indication: Relapsing-remitting multiple sclerosis
     Dosage: 20 MG, QMO
     Route: 058
     Dates: start: 20221111, end: 20221111
  2. KESIMPTA [Suspect]
     Active Substance: OFATUMUMAB
     Indication: Secondary progressive multiple sclerosis
  3. KESIMPTA [Suspect]
     Active Substance: OFATUMUMAB
     Indication: Clinically isolated syndrome

REACTIONS (9)
  - Memory impairment [Recovered/Resolved]
  - Confusional state [Recovered/Resolved]
  - Feeling abnormal [Recovered/Resolved]
  - Tremor [Recovered/Resolved]
  - Influenza like illness [Recovered/Resolved]
  - Pain [Recovered/Resolved]
  - Chills [Recovered/Resolved]
  - Fatigue [Recovered/Resolved]
  - Headache [Recovered/Resolved]

NARRATIVE: CASE EVENT DATE: 20221111
